FAERS Safety Report 9308678 (Version 2)
Quarter: 2013Q2

REPORT INFORMATION
  Report Type: Spontaneous
  Country: US (occurrence: US)
  Receive Date: 20130524
  Receipt Date: 20130626
  Transmission Date: 20140414
  Serious: Yes (Other)
  Sender: FDA-Public Use
  Company Number: PHHY2013US051013

PATIENT
  Age: 54 Year
  Sex: Male

DRUGS (2)
  1. SERTRALINE [Suspect]
  2. COUMADINE [Concomitant]

REACTIONS (4)
  - Epidermal necrosis [Unknown]
  - Rash erythematous [Recovered/Resolved]
  - Eczema [Unknown]
  - Dermatitis [Unknown]
